FAERS Safety Report 13153427 (Version 1)
Quarter: 2017Q1

REPORT INFORMATION
  Report Type: Spontaneous
  Country: US (occurrence: US)
  Receive Date: 20170125
  Receipt Date: 20170125
  Transmission Date: 20170428
  Serious: Yes (Other)
  Sender: FDA-Public Use
  Company Number: None

PATIENT
  Age: 70 Year
  Sex: Male
  Weight: 60.29 kg

DRUGS (1)
  1. TRIMETHOPRIM/SULFA DS [Suspect]
     Active Substance: SULFAMETHOXAZOLE\TRIMETHOPRIM
     Indication: URINARY TRACT INFECTION
     Route: 048
     Dates: start: 20160621, end: 20160622

REACTIONS (2)
  - Blister [None]
  - Erythema [None]

NARRATIVE: CASE EVENT DATE: 20160622
